FAERS Safety Report 4984450-0 (Version None)
Quarter: 2006Q2

REPORT INFORMATION
  Report Type: 
  Country: None (occurrence: None)
  Receive Date: 20060427
  Receipt Date: 20060220
  Transmission Date: 20061013
  Serious: Yes (Hospitalization, Other)
  Sender: FDA-Public Use
  Company Number: SE-GLAXOSMITHKLINE-B0414108A

PATIENT
  Age: 32 Year
  Sex: Female

DRUGS (8)
  1. LAMICTAL [Suspect]
     Dosage: 25MG TWICE PER DAY
     Route: 048
     Dates: start: 20051108, end: 20060210
  2. UNKNOWN DRUG [Suspect]
     Dosage: 80MG PER DAY
     Route: 048
  3. XYLOCAINE [Suspect]
     Route: 058
  4. LEVAXIN [Concomitant]
  5. PROPAVAN [Concomitant]
  6. LASIX [Concomitant]
  7. NORGESIC [Concomitant]
  8. FLUOXETINE [Concomitant]

REACTIONS (4)
  - ELECTROCARDIOGRAM QT PROLONGED [None]
  - HYPOKALAEMIA [None]
  - MUSCLE SPASMS [None]
  - TORSADE DE POINTES [None]
